FAERS Safety Report 6443308-0 (Version None)
Quarter: 2009Q4

REPORT INFORMATION
  Report Type: 
  Country: None (occurrence: None)
  Receive Date: 20091117
  Receipt Date: 20091113
  Transmission Date: 20100525
  Serious: Yes (Life-Threatening, Hospitalization)
  Sender: FDA-Public Use
  Company Number: CH-JNJFOC-20091104110

PATIENT
  Age: 73 Year
  Sex: Male

DRUGS (10)
  1. TAVANIC [Suspect]
     Indication: PNEUMONIA ASPIRATION
     Route: 048
     Dates: start: 20091012, end: 20091020
  2. CLOPIN ECO [Suspect]
     Indication: DRUG USE FOR UNKNOWN INDICATION
     Route: 048
     Dates: start: 20090717, end: 20091023
  3. CIPROFLOXACIN [Suspect]
     Indication: URINARY TRACT INFECTION
     Route: 048
     Dates: start: 20091007, end: 20091012
  4. REMERON [Suspect]
     Indication: DRUG USE FOR UNKNOWN INDICATION
     Route: 048
  5. LYRICA [Suspect]
     Indication: DRUG USE FOR UNKNOWN INDICATION
     Route: 048
  6. DAFALGAN [Suspect]
     Indication: DRUG USE FOR UNKNOWN INDICATION
     Route: 048
  7. EFFORTIL [Concomitant]
     Route: 065
  8. LAXOBERON [Concomitant]
     Route: 065
  9. NULYTELY [Concomitant]
     Route: 065
  10. CIPRALEX [Concomitant]
     Route: 065

REACTIONS (3)
  - BACTERIAL INFECTION [None]
  - NEUTROPENIA [None]
  - WHITE BLOOD CELL COUNT DECREASED [None]
